FAERS Safety Report 14474667 (Version 1)
Quarter: 2018Q1

REPORT INFORMATION
  Report Type: Spontaneous
  Country: US (occurrence: US)
  Receive Date: 20180201
  Receipt Date: 20180201
  Transmission Date: 20180509
  Serious: Yes (Life-Threatening, Other)
  Sender: FDA-Public Use
  Company Number: US-SEPTODONT-201804471

PATIENT
  Age: 40 Year
  Sex: Male

DRUGS (8)
  1. LIDOCAINE. [Concomitant]
     Active Substance: LIDOCAINE
     Indication: GENERAL ANAESTHESIA
     Dosage: FOR INDUCTION OF GENERAL ANESTHESIA
  2. PROPOFOL. [Concomitant]
     Active Substance: PROPOFOL
     Indication: GENERAL ANAESTHESIA
     Dosage: FOR INDUCTION OF GENERAL ANESTHESIA
  3. LIDOCAINE. [Suspect]
     Active Substance: LIDOCAINE
     Indication: POSTOPERATIVE ANALGESIA
     Route: 057
  4. SEVOFLURANE. [Concomitant]
     Active Substance: SEVOFLURANE
     Indication: GENERAL ANAESTHESIA
     Route: 055
  5. BUPIVACAINE. [Concomitant]
     Active Substance: BUPIVACAINE
     Indication: POSTOPERATIVE ANALGESIA
     Route: 057
  6. LIDOCAINE. [Suspect]
     Active Substance: LIDOCAINE
     Indication: POSTOPERATIVE ANALGESIA
     Route: 050
  7. BUPIVACAINE. [Concomitant]
     Active Substance: BUPIVACAINE
     Indication: POSTOPERATIVE ANALGESIA
  8. FENTANYL. [Concomitant]
     Active Substance: FENTANYL
     Indication: GENERAL ANAESTHESIA
     Dosage: INDUCTION OF GENERAL ANESTHESIA

REACTIONS (4)
  - Oculocardiac reflex [Recovered/Resolved]
  - Sinus arrest [Recovered/Resolved]
  - Off label use [Recovered/Resolved]
  - Cardiac arrest [Recovered/Resolved]
